FAERS Safety Report 5074666-X (Version None)
Quarter: 2006Q3

REPORT INFORMATION
  Report Type: 
  Country: None (occurrence: None)
  Receive Date: 20060803
  Receipt Date: 20060714
  Transmission Date: 20061208
  Serious: Yes (Death, Other)
  Sender: FDA-Public Use
  Company Number: 2006091924

PATIENT
  Sex: Female

DRUGS (2)
  1. BEXTRA [Suspect]
     Indication: DRUG USE FOR UNKNOWN INDICATION
     Dates: start: 20031003, end: 20040520
  2. VIOXX [Suspect]
     Indication: DRUG USE FOR UNKNOWN INDICATION
     Dates: start: 20030603, end: 20040601

REACTIONS (1)
  - MYOCARDIAL INFARCTION [None]
